FAERS Safety Report 7374984-6 (Version None)
Quarter: 2011Q1

REPORT INFORMATION
  Report Type: 
  Country: None (occurrence: None)
  Receive Date: 20110325
  Receipt Date: 20110314
  Transmission Date: 20110831
  Serious: Yes (Other)
  Sender: FDA-Public Use
  Company Number: PHFR2011GB01924

PATIENT
  Sex: Male

DRUGS (1)
  1. CLOZARIL [Suspect]
     Indication: SCHIZOPHRENIA
     Dosage: 50 MG AM + 75 MG PM
     Route: 048
     Dates: start: 20110307

REACTIONS (3)
  - ORTHOSTATIC HYPOTENSION [None]
  - DIZZINESS [None]
  - TACHYCARDIA [None]
